FAERS Safety Report 19368304 (Version 1)
Quarter: 2021Q2

REPORT INFORMATION
  Report Type: Spontaneous
  Country: US (occurrence: US)
  Receive Date: 20210602
  Receipt Date: 20210602
  Transmission Date: 20210717
  Serious: No
  Sender: FDA-Public Use
  Company Number: US-ROCHE-2632190

PATIENT
  Sex: Female
  Weight: 53.57 kg

DRUGS (1)
  1. OCREVUS [Suspect]
     Active Substance: OCRELIZUMAB
     Indication: RELAPSING-REMITTING MULTIPLE SCLEROSIS
     Dosage: IV INFUSION ONCE EVERY 6 MONTHS ;ONGOING: YES
     Route: 041
     Dates: start: 2019

REACTIONS (1)
  - Illness [Unknown]
